FAERS Safety Report 4747870-5 (Version None)
Quarter: 2005Q3

REPORT INFORMATION
  Report Type: 
  Country: None (occurrence: None)
  Receive Date: 20050817
  Receipt Date: 20050817
  Transmission Date: 20060218
  Serious: Yes (Disabling, Other)
  Sender: FDA-Public Use
  Company Number: None

PATIENT
  Sex: Male
  Weight: 13.6079 kg

DRUGS (2)
  1. RITALIN [Suspect]
     Indication: ATTENTION DEFICIT/HYPERACTIVITY DISORDER
     Dosage: 3 A DAY  ORAL
     Route: 048
     Dates: start: 19981213, end: 20000915
  2. CONCERTA [Suspect]
     Indication: ATTENTION DEFICIT/HYPERACTIVITY DISORDER
     Dosage: 1 A DAY ORAL
     Route: 048
     Dates: start: 20000915, end: 20041119

REACTIONS (3)
  - BRAIN DAMAGE [None]
  - FEELING ABNORMAL [None]
  - PSYCHOTIC DISORDER [None]
